FAERS Safety Report 5321193-8 (Version None)
Quarter: 2007Q1

REPORT INFORMATION
  Report Type: 
  Country: None (occurrence: None)
  Receive Date: 20070215
  Receipt Date: 20061027
  Transmission Date: 20070707
  Serious: Yes (Hospitalization)
  Sender: FDA-Public Use
  Company Number: 2006BH014336

PATIENT
  Age: 43 Year
  Sex: Male

DRUGS (2)
  1. EXTRANEAL [Suspect]
     Indication: RENAL FAILURE CHRONIC
     Dosage: IP
     Dates: start: 20061017, end: 20061027
  2. DIANEAL [Concomitant]

REACTIONS (4)
  - DYSPNOEA [None]
  - OEDEMA PERIPHERAL [None]
  - PRURITUS [None]
  - SKIN EXFOLIATION [None]
